FAERS Safety Report 5384199-9 (Version None)
Quarter: 2007Q3

REPORT INFORMATION
  Report Type: 
  Country: None (occurrence: None)
  Receive Date: 20070711
  Receipt Date: 20070709
  Transmission Date: 20080115
  Serious: Yes (Other)
  Sender: FDA-Public Use
  Company Number: B0474950A

PATIENT
  Age: 8 Year
  Sex: Female
  Weight: 28 kg

DRUGS (4)
  1. RELENZA [Suspect]
     Indication: INFLUENZA
     Dosage: 10MG TWICE PER DAY
     Route: 055
     Dates: start: 20070602, end: 20070604
  2. MUCODYNE [Concomitant]
     Indication: PRODUCTIVE COUGH
     Route: 048
     Dates: start: 20070602, end: 20070609
  3. ASVERIN [Concomitant]
     Indication: COUGH
     Route: 048
     Dates: start: 20070602, end: 20070609
  4. CALONAL [Concomitant]
     Route: 048
     Dates: start: 20070602, end: 20070605

REACTIONS (3)
  - ABNORMAL BEHAVIOUR [None]
  - EUPHORIC MOOD [None]
  - HALLUCINATION [None]
